FAERS Safety Report 9995002 (Version 4)
Quarter: 2014Q2

REPORT INFORMATION
  Report Type: Report from Study
  Country: FR (occurrence: FR)
  Receive Date: 20140311
  Receipt Date: 20140623
  Transmission Date: 20141212
  Serious: Yes (Hospitalization, Disabling)
  Sender: FDA-Public Use
  Company Number: FR-ROCHE-1359212

PATIENT
  Age: 50 Year
  Sex: Male
  Weight: 82 kg

DRUGS (16)
  1. VISMODEGIB [Suspect]
     Indication: BASAL CELL CARCINOMA
     Dosage: DISCONTINUED ON 30/JUL/2013.
     Route: 048
     Dates: start: 20120731, end: 20130729
  2. ERIVEDGE [Suspect]
     Indication: BASAL CELL CARCINOMA
     Route: 048
     Dates: start: 20131116, end: 20140128
  3. AMOXICILLIN [Concomitant]
     Indication: EAR INFECTION
     Route: 065
     Dates: start: 20120823, end: 20120827
  4. OFLOCET [Concomitant]
     Indication: EAR INFECTION
     Dosage: 2 DOSES
     Route: 065
     Dates: start: 20120827, end: 20120903
  5. OFLOCET [Concomitant]
     Indication: OTITIS EXTERNA
     Dosage: 2 INSTILLATIONS A DAY
     Route: 065
     Dates: start: 20120925
  6. OFLOCET [Concomitant]
     Route: 065
     Dates: start: 20121113, end: 20121120
  7. OFLOCET [Concomitant]
     Route: 065
     Dates: start: 20130430, end: 20130507
  8. OFLOCET [Concomitant]
     Route: 065
     Dates: start: 20130702, end: 20130709
  9. PARACETAMOL [Concomitant]
     Indication: EAR INFECTION
     Route: 065
     Dates: start: 20120827, end: 20120902
  10. AUGMENTIN [Concomitant]
     Indication: EAR INFECTION
     Route: 065
     Dates: start: 20121113, end: 20121120
  11. AUGMENTIN [Concomitant]
     Indication: NASOPHARYNGITIS
     Route: 065
     Dates: start: 20121210, end: 20121215
  12. AUGMENTIN [Concomitant]
     Route: 065
     Dates: start: 20121218, end: 20121228
  13. SOLUPRED (FRANCE) [Concomitant]
     Indication: EAR INFECTION
     Route: 065
     Dates: start: 20121113, end: 20121118
  14. SOLUPRED (FRANCE) [Concomitant]
     Route: 065
     Dates: start: 20121218, end: 20121225
  15. INEXIUM [Concomitant]
     Indication: PROPHYLAXIS
     Route: 065
     Dates: start: 20121218, end: 20121225
  16. DOLIPRANE [Concomitant]
     Indication: MUSCLE SPASMS
     Route: 065
     Dates: start: 20130121, end: 20130208

REACTIONS (1)
  - Squamous cell carcinoma [Not Recovered/Not Resolved]
